FAERS Safety Report 24780078 (Version 2)
Quarter: 2025Q1

REPORT INFORMATION
  Report Type: Spontaneous
  Country: US (occurrence: US)
  Receive Date: 20241227
  Receipt Date: 20250120
  Transmission Date: 20250409
  Serious: No
  Sender: ELI LILLY AND COMPANY
  Company Number: US-ELI_LILLY_AND_COMPANY-US202412014975

PATIENT
  Age: 73 Year
  Sex: Female

DRUGS (1)
  1. EBGLYSS [Suspect]
     Active Substance: LEBRIKIZUMAB-LBKZ
     Indication: Product used for unknown indication
     Route: 065

REACTIONS (9)
  - Dry eye [Unknown]
  - Incorrect dose administered [Unknown]
  - Eyelids pruritus [Unknown]
  - Ocular hyperaemia [Unknown]
  - Muscle spasms [Unknown]
  - Rash [Unknown]
  - Urticaria [Unknown]
  - Drug ineffective [Unknown]
  - Injection site pain [Recovered/Resolved]
